FAERS Safety Report 22195138 (Version 1)
Quarter: 2023Q2

REPORT INFORMATION
  Report Type: Report from Study
  Country: US (occurrence: US)
  Receive Date: 20230411
  Receipt Date: 20230411
  Transmission Date: 20230722
  Serious: Yes (Hospitalization)
  Sender: FDA-Public Use
  Company Number: US-ARGENX-2023-ARGX-US001064

PATIENT

DRUGS (1)
  1. VYVGART [Suspect]
     Active Substance: EFGARTIGIMOD ALFA-FCAB
     Indication: Myasthenia gravis
     Dosage: UNK
     Dates: start: 20230404

REACTIONS (4)
  - Tachycardia [Unknown]
  - Diarrhoea [Unknown]
  - Vomiting [Unknown]
  - Procedural headache [Unknown]

NARRATIVE: CASE EVENT DATE: 20230404
